FAERS Safety Report 5306287-5 (Version None)
Quarter: 2007Q2

REPORT INFORMATION
  Report Type: 
  Country: None (occurrence: None)
  Receive Date: 20070424
  Receipt Date: 20070416
  Transmission Date: 20071010
  Serious: No
  Sender: FDA-Public Use
  Company Number: JP-ELI_LILLY_AND_COMPANY-JP200704000051

PATIENT
  Age: 67 Year
  Sex: Male
  Weight: 52.8 kg

DRUGS (6)
  1. PEMETREXED [Suspect]
     Indication: PLEURAL MESOTHELIOMA MALIGNANT
     Route: 042
     Dates: start: 20070313, end: 20070313
  2. *CISPLATIN [Suspect]
     Indication: PLEURAL MESOTHELIOMA MALIGNANT
     Route: 042
     Dates: start: 20070313, end: 20070313
  3. PANVITAN [Concomitant]
     Indication: PROPHYLAXIS
     Dosage: 0.5 MG, DAILY (1/D)
     Route: 048
     Dates: start: 20070227, end: 20070329
  4. HYDROXOCOBALAMIN ACETATE [Concomitant]
     Indication: PROPHYLAXIS
     Dosage: 1 MG, UNK
     Route: 030
     Dates: start: 20070227, end: 20070227
  5. PARIET [Concomitant]
     Indication: PROPHYLAXIS
     Dosage: 10 MG, DAILY (1/D)
     Route: 048
     Dates: start: 20070309, end: 20070329
  6. MUCODYNE [Concomitant]
     Indication: PROPHYLAXIS
     Dosage: 1500 MG, DAILY (1/D)
     Route: 048
     Dates: start: 20070309, end: 20070329

REACTIONS (1)
  - NO ADVERSE EFFECT [None]
